FAERS Safety Report 11838862 (Version 3)
Quarter: 2016Q1

REPORT INFORMATION
  Report Type: Spontaneous
  Country: PL (occurrence: PL)
  Receive Date: 20151215
  Receipt Date: 20160302
  Transmission Date: 20160525
  Serious: Yes (Hospitalization, Other)
  Sender: FDA-Public Use
  Company Number: PL-AMGEN-POLSP2015131829

PATIENT
  Age: 85 Year
  Sex: Female
  Weight: 92 kg

DRUGS (1)
  1. PROLIA [Suspect]
     Active Substance: DENOSUMAB
     Indication: OSTEOPOROSIS
     Dosage: 60 MG, Q6MO
     Route: 065
     Dates: start: 20130507

REACTIONS (8)
  - Somatic symptom disorder [Unknown]
  - Gastrooesophageal reflux disease [Unknown]
  - Fall [Recovered/Resolved]
  - Obesity [Unknown]
  - Depression [Unknown]
  - Arthralgia [Unknown]
  - Femur fracture [Recovered/Resolved]
  - Neuropathy peripheral [Unknown]
